FAERS Safety Report 8418695-4 (Version None)
Quarter: 2012Q2

REPORT INFORMATION
  Report Type: 
  Country: None (occurrence: None)
  Receive Date: 20120607
  Receipt Date: 20120531
  Transmission Date: 20120825
  Serious: Yes (Other)
  Sender: FDA-Public Use
  Company Number: JP-PFIZER INC-2012112543

PATIENT
  Age: 74 Year
  Sex: Female

DRUGS (8)
  1. LYRICA [Suspect]
     Dosage: 75 MG, 2X/DAY
     Route: 048
     Dates: start: 20120507
  2. RIZE [Suspect]
     Dosage: 5 MG, 3X/DAY
     Route: 048
     Dates: start: 20120506, end: 20120507
  3. BANAN [Concomitant]
     Dosage: 100 MG, 2X/DAY
     Route: 048
     Dates: start: 20120505, end: 20120508
  4. ETODOLAC [Concomitant]
     Dosage: UNK
     Route: 048
     Dates: start: 20120401
  5. CELEBREX [Suspect]
     Dosage: 100 MG, 2X/DAY
     Route: 048
     Dates: start: 20120501, end: 20120504
  6. LOXONIN [Suspect]
     Dosage: 60 MG, 3X/DAY
     Route: 048
     Dates: start: 20120507
  7. CELOOP [Suspect]
     Dosage: 50 MG, 2X/DAY
     Route: 048
     Dates: start: 20120501
  8. LOXONIN [Suspect]
     Dosage: 60 MG, 2X/DAY
     Route: 048
     Dates: start: 20120505, end: 20120506

REACTIONS (2)
  - LOSS OF CONTROL OF LEGS [None]
  - GAIT DISTURBANCE [None]
